FAERS Safety Report 16702437 (Version 1)
Quarter: 2019Q3

REPORT INFORMATION
  Report Type: Spontaneous
  Country: MX (occurrence: MX)
  Receive Date: 20190813
  Receipt Date: 20190813
  Transmission Date: 20191004
  Serious: No
  Sender: FDA-Public Use
  Company Number: None

PATIENT
  Age: 21 Year
  Sex: Female
  Weight: 48 kg

DRUGS (1)
  1. LOCOID [Suspect]
     Active Substance: HYDROCORTISONE BUTYRATE

REACTIONS (5)
  - Anxiety [None]
  - Skin haemorrhage [None]
  - Skin weeping [None]
  - Skin disorder [None]
  - Skin infection [None]

NARRATIVE: CASE EVENT DATE: 20190107
